FAERS Safety Report 13423001 (Version 1)
Quarter: 2017Q2

REPORT INFORMATION
  Report Type: Spontaneous
  Country: CH (occurrence: CH)
  Receive Date: 20170410
  Receipt Date: 20170410
  Transmission Date: 20170830
  Serious: Yes (Death, Hospitalization)
  Sender: FDA-Public Use
  Company Number: CH-EDENBRIDGE PHARMACEUTICALS, LLC-CH-2017EDE000014

PATIENT
  Age: 80 Year
  Sex: Male

DRUGS (5)
  1. AZATHIOPRINE. [Suspect]
     Active Substance: AZATHIOPRINE
     Indication: HEPATITIS
     Dosage: UNK
  2. PREDNISOLONE SODIUM PHOSPHATE. [Suspect]
     Active Substance: PREDNISOLONE SODIUM PHOSPHATE
     Indication: HEPATITIS
     Dosage: UNK
  3. BUDESONID [Suspect]
     Active Substance: BUDESONIDE
     Indication: HEPATITIS
     Dosage: UNK
  4. CELLCEPT [Suspect]
     Active Substance: MYCOPHENOLATE MOFETIL\MYCOPHENOLATE MOFETIL HYDROCHLORIDE
     Indication: HEPATITIS
     Dosage: UNK
  5. PREDNISON [Suspect]
     Active Substance: PREDNISONE
     Indication: HEPATITIS
     Dosage: UNK

REACTIONS (1)
  - Visceral leishmaniasis [Fatal]

NARRATIVE: CASE EVENT DATE: 201503
